FAERS Safety Report 4329402-9 (Version None)
Quarter: 2004Q1

REPORT INFORMATION
  Report Type: 
  Country: None (occurrence: None)
  Receive Date: 20040331
  Receipt Date: 20040331
  Transmission Date: 20041129
  Serious: Yes (Other)
  Sender: FDA-Public Use
  Company Number: None

PATIENT
  Age: 58 Year
  Sex: Female
  Weight: 53 kg

DRUGS (9)
  1. VANCOMYCIN [Suspect]
     Indication: LOCALISED INFECTION
     Dosage: 1 GRAM IV Q12 H
     Route: 042
     Dates: start: 20040313, end: 20040317
  2. RIFAMPIN [Concomitant]
  3. EFFEXOR XR [Concomitant]
  4. PREDNISONE [Concomitant]
  5. VICODIN [Concomitant]
  6. ACYCLOVIR [Concomitant]
  7. FOLIC ACID [Concomitant]
  8. DHEA [Concomitant]
  9. CALCIUM [Concomitant]

REACTIONS (1)
  - RASH GENERALISED [None]
